FAERS Safety Report 15747425 (Version 2)
Quarter: 2019Q1

REPORT INFORMATION
  Report Type: Spontaneous
  Country: US (occurrence: US)
  Receive Date: 20181220
  Receipt Date: 20190121
  Transmission Date: 20190417
  Serious: Yes (Hospitalization)
  Sender: FDA-Public Use
  Company Number: US-LEXICON PHARMACEUTICALS, INC-18-1606-01588

PATIENT
  Age: 70 Year
  Sex: Male

DRUGS (11)
  1. TELOTRISTAT ETHYL [Suspect]
     Active Substance: TELOTRISTAT ETHYL
     Indication: CARCINOID TUMOUR
     Route: 048
     Dates: start: 20180925
  2. ASCORBIC ACID. [Concomitant]
     Active Substance: ASCORBIC ACID
  3. ACETAMIN [Concomitant]
     Active Substance: ACETAMINOPHEN
  4. TELOTRISTAT ETHYL [Suspect]
     Active Substance: TELOTRISTAT ETHYL
     Indication: METASTASES TO BONE
  5. GLUCOS/CHOND [Concomitant]
  6. CYANOCOBALAMIN. [Concomitant]
     Active Substance: CYANOCOBALAMIN
  7. MULTIVITAMIN MEN [Concomitant]
  8. AMLODIPIN [Concomitant]
     Active Substance: AMLODIPINE BESYLATE
  9. ASPIRIN. [Concomitant]
     Active Substance: ASPIRIN
  10. COLCHICINE. [Concomitant]
     Active Substance: COLCHICINE
  11. TAMSULOSIN [Concomitant]
     Active Substance: TAMSULOSIN

REACTIONS (2)
  - Constipation [Unknown]
  - Renal disorder [Not Recovered/Not Resolved]

NARRATIVE: CASE EVENT DATE: 20181212
